FAERS Safety Report 10456057 (Version 1)
Quarter: 2014Q3

REPORT INFORMATION
  Report Type: Spontaneous
  Country: CN (occurrence: CN)
  Receive Date: 20140916
  Receipt Date: 20140916
  Transmission Date: 20150326
  Serious: Yes (Other)
  Sender: FDA-Public Use
  Company Number: CN-JNJFOC-20140902946

PATIENT

DRUGS (1)
  1. DOXORUBICIN [Suspect]
     Active Substance: DOXORUBICIN
     Indication: HEPATOCELLULAR CARCINOMA
     Dosage: 30-40 MG/M2, ??5-FU 500-600 MG/M2.
     Route: 042

REACTIONS (6)
  - Bone marrow failure [Unknown]
  - Post embolisation syndrome [Unknown]
  - Off label use [Unknown]
  - Hyperbilirubinaemia [Unknown]
  - Liver function test abnormal [Unknown]
  - Gastrointestinal toxicity [Unknown]
